FAERS Safety Report 16750177 (Version 1)
Quarter: 2019Q4

REPORT INFORMATION
  Report Type: Spontaneous
  Country: US (occurrence: US)
  Receive Date: 20190827
  Receipt Date: 20190827
  Transmission Date: 20200122
  Serious: Yes (Death)
  Sender: FDA-Public Use
  Company Number: None

PATIENT
  Age: 77 Year
  Sex: Female
  Weight: 45 kg

DRUGS (1)
  1. FULVESTRANT 250 MG SYRINGE (2 PK) [Suspect]
     Active Substance: FULVESTRANT
     Indication: BREAST CANCER
     Dosage: ?          OTHER FREQUENCY:DAYS 1 15 29;?
     Route: 042

REACTIONS (1)
  - Death [None]

NARRATIVE: CASE EVENT DATE: 20190804
